FAERS Safety Report 21562728 (Version 1)
Quarter: 2022Q4

REPORT INFORMATION
  Report Type: Report from Study
  Country: US (occurrence: US)
  Receive Date: 20221107
  Receipt Date: 20221107
  Transmission Date: 20230113
  Serious: No
  Sender: FDA-Public Use
  Company Number: US-ABBVIE-4153991

PATIENT
  Age: 55 Year
  Sex: Female

DRUGS (1)
  1. RINVOQ [Suspect]
     Active Substance: UPADACITINIB
     Indication: Rheumatoid arthritis
     Dosage: EXTENDED RELEASE 15 MG BY MOUTH DAILY
     Route: 048
     Dates: start: 20220906, end: 20220914

REACTIONS (1)
  - Influenza like illness [Unknown]

NARRATIVE: CASE EVENT DATE: 20220901
